FAERS Safety Report 7056754-1 (Version None)
Quarter: 2010Q4

REPORT INFORMATION
  Report Type: 
  Country: None (occurrence: None)
  Receive Date: 20101022
  Receipt Date: 20101013
  Transmission Date: 20110411
  Serious: Yes (Hospitalization)
  Sender: FDA-Public Use
  Company Number: US-BIOGENIDEC-2010BI033443

PATIENT
  Age: 63 Year
  Sex: Female

DRUGS (2)
  1. AVONEX [Suspect]
     Indication: MULTIPLE SCLEROSIS
     Route: 030
     Dates: start: 20030721, end: 20080215
  2. AVONEX [Suspect]
     Route: 030
     Dates: start: 20080721, end: 20100101

REACTIONS (5)
  - DECREASED IMMUNE RESPONSIVENESS [None]
  - FALL [None]
  - HIP FRACTURE [None]
  - PAIN [None]
  - STAPHYLOCOCCAL INFECTION [None]
